FAERS Safety Report 4315982-6 (Version None)
Quarter: 2004Q1

REPORT INFORMATION
  Report Type: 
  Country: None (occurrence: None)
  Receive Date: 20040310
  Receipt Date: 20040225
  Transmission Date: 20041129
  Serious: Yes (Hospitalization)
  Sender: FDA-Public Use
  Company Number: 2004012917

PATIENT
  Age: 58 Year
  Sex: Male

DRUGS (2)
  1. DIFLUCAN [Suspect]
     Indication: ILL-DEFINED DISORDER
     Dosage: 100 MG (DAILY), ORAL
     Route: 048
     Dates: start: 20040120, end: 20040130
  2. TRAMADOL HCL [Concomitant]

REACTIONS (2)
  - ERYTHEMA [None]
  - EXANTHEM [None]
